FAERS Safety Report 4275084-4 (Version None)
Quarter: 2004Q1

REPORT INFORMATION
  Report Type: 
  Country: None (occurrence: None)
  Receive Date: 20040116
  Receipt Date: 20040108
  Transmission Date: 20041129
  Serious: Yes (Other)
  Sender: FDA-Public Use
  Company Number: 2004001928

PATIENT
  Age: 78 Year
  Sex: Male

DRUGS (1)
  1. ZITHROMAX [Suspect]
     Indication: INFECTION PROPHYLAXIS
     Dosage: 500 MG, ORAL
     Route: 048
     Dates: start: 20031216

REACTIONS (2)
  - FALL [None]
  - SHOCK [None]
